FAERS Safety Report 25006453 (Version 2)
Quarter: 2025Q1

REPORT INFORMATION
  Report Type: Spontaneous
  Country: US (occurrence: US)
  Receive Date: 20250224
  Receipt Date: 20250302
  Transmission Date: 20250408
  Serious: Yes (Hospitalization)
  Sender: NOVO NORDISK
  Company Number: US-NOVOPROD-1372298

PATIENT
  Age: 77 Year
  Sex: Female

DRUGS (2)
  1. OZEMPIC [Suspect]
     Active Substance: SEMAGLUTIDE
     Dates: start: 20250212
  2. OZEMPIC [Suspect]
     Active Substance: SEMAGLUTIDE
     Indication: Type 2 diabetes mellitus
     Dosage: 0.5 MG, QW
     Dates: start: 2018, end: 20250204

REACTIONS (4)
  - Cystocele [Recovering/Resolving]
  - Urinary tract infection [Recovered/Resolved]
  - Incontinence [Recovering/Resolving]
  - Wrong technique in device usage process [Unknown]

NARRATIVE: CASE EVENT DATE: 20250101
